FAERS Safety Report 4987384-0 (Version None)
Quarter: 2006Q2

REPORT INFORMATION
  Report Type: 
  Country: None (occurrence: None)
  Receive Date: 20060501
  Receipt Date: 20050916
  Transmission Date: 20061013
  Serious: Yes (Hospitalization)
  Sender: FDA-Public Use
  Company Number: US-MERCK-0509USA02663

PATIENT
  Age: 46 Year
  Sex: Male
  Weight: 86 kg

DRUGS (9)
  1. VIOXX [Suspect]
     Indication: BACK PAIN
     Route: 048
     Dates: start: 19991201, end: 20011113
  2. VIOXX [Suspect]
     Route: 048
     Dates: start: 19991201, end: 20011113
  3. HYDROCODONE HYDROCHLORIDE [Concomitant]
     Indication: BACK PAIN
     Route: 065
     Dates: start: 19990101
  4. PREVACID [Concomitant]
     Route: 065
  5. ZITHROMAX [Concomitant]
     Route: 065
  6. GUAIFED [Concomitant]
     Route: 065
  7. NORVASC [Concomitant]
     Indication: HYPERTENSION
     Route: 065
  8. AMITRIPTYLINE HYDROCHLORIDE [Concomitant]
     Indication: PAIN
     Route: 065
     Dates: start: 20000601
  9. NABUMETONE [Concomitant]
     Route: 065
     Dates: start: 20010901

REACTIONS (7)
  - BLOOD CHOLESTEROL INCREASED [None]
  - CHEST PAIN [None]
  - CORONARY ARTERY DISEASE [None]
  - GASTRIC DISORDER [None]
  - INFLUENZA [None]
  - MYOCARDIAL INFARCTION [None]
  - PNEUMONIA [None]
